FAERS Safety Report 7068925-9 (Version None)
Quarter: 2010Q4

REPORT INFORMATION
  Report Type: 
  Country: None (occurrence: None)
  Receive Date: 20101028
  Receipt Date: 20101018
  Transmission Date: 20110411
  Serious: Yes (Other)
  Sender: FDA-Public Use
  Company Number: PHHY2010AU70501

PATIENT
  Sex: Male

DRUGS (2)
  1. GLEEVEC [Suspect]
     Indication: CHRONIC MYELOID LEUKAEMIA
     Dosage: UNK
     Route: 048
  2. GLEEVEC [Suspect]
     Dosage: 200 MG, UNK
     Route: 048

REACTIONS (2)
  - PLATELET COUNT ABNORMAL [None]
  - RENAL TRANSPLANT [None]
